FAERS Safety Report 8891297 (Version 1)
Quarter: 2012Q4

REPORT INFORMATION
  Report Type: 
  Country: US (occurrence: US)
  Receive Date: 20121107
  Receipt Date: 20121107
  Transmission Date: 20130627
  Serious: Yes (Other)
  Sender: FDA-Public Use
  Company Number: US-AMGEN-USASP2012070121

PATIENT
  Age: 72 Year
  Sex: Female

DRUGS (1)
  1. NPLATE [Suspect]
     Indication: AUTOIMMUNE THROMBOCYTOPENIA
     Dosage: UNK
     Dates: start: 2009

REACTIONS (3)
  - Bipolar disorder [Unknown]
  - Purpura [Unknown]
  - Platelet count decreased [Unknown]
